FAERS Safety Report 23678192 (Version 1)
Quarter: 2024Q1

REPORT INFORMATION
  Report Type: Spontaneous
  Country: US (occurrence: None)
  Receive Date: 20240326
  Receipt Date: 20240326
  Transmission Date: 20240409
  Serious: Yes (Other)
  Sender: FDA-Public Use
  Company Number: None

PATIENT
  Age: 34 Year
  Sex: Female
  Weight: 122.85 kg

DRUGS (1)
  1. TIRZEPATIDE [Suspect]
     Active Substance: TIRZEPATIDE
     Indication: Weight decreased
     Dosage: OTHER FREQUENCY : 1 INJECTION/WK;?
     Route: 030
     Dates: start: 20230601, end: 20240308

REACTIONS (6)
  - Anxiety [None]
  - Depression [None]
  - Palpitations [None]
  - Dizziness [None]
  - Chest pain [None]
  - Nonspecific reaction [None]

NARRATIVE: CASE EVENT DATE: 20240120
